FAERS Safety Report 22267141 (Version 1)
Quarter: 2023Q2

REPORT INFORMATION
  Report Type: Spontaneous
  Country: US (occurrence: US)
  Receive Date: 20230428
  Receipt Date: 20230428
  Transmission Date: 20230722
  Serious: No
  Sender: FDA-Public Use
  Company Number: US-MYLANLABS-2023M1042244

PATIENT
  Age: 75 Year
  Sex: Female
  Weight: 88 kg

DRUGS (3)
  1. WIXELA INHUB [Suspect]
     Active Substance: FLUTICASONE PROPIONATE\SALMETEROL XINAFOATE
     Indication: Asthma
     Dosage: UNK (500/50 MCG), QD
     Route: 055
     Dates: start: 20230408, end: 20230414
  2. ROBITUSSIN (GUAIFENESIN) [Concomitant]
     Active Substance: GUAIFENESIN
     Dosage: UNK
     Route: 065
  3. HONEY [Concomitant]
     Active Substance: HONEY
     Dosage: UNK
     Route: 065

REACTIONS (1)
  - Drug ineffective [Recovering/Resolving]

NARRATIVE: CASE EVENT DATE: 20230408
